FAERS Safety Report 14666284 (Version 1)
Quarter: 2018Q1

REPORT INFORMATION
  Report Type: Spontaneous
  Country: CA (occurrence: CA)
  Receive Date: 20180321
  Receipt Date: 20180321
  Transmission Date: 20180509
  Serious: Yes (Other)
  Sender: FDA-Public Use
  Company Number: PHHY2018CA040718

PATIENT
  Age: 65 Year
  Sex: Male

DRUGS (8)
  1. BUDESONIDE. [Interacting]
     Active Substance: BUDESONIDE
     Indication: PRODUCT USED FOR UNKNOWN INDICATION
     Dosage: 128 UG, QD ((TOTAL DAILY DOSE 128 UG)
     Route: 006
  2. ABACAVIR. [Concomitant]
     Active Substance: ABACAVIR
     Indication: HIV INFECTION
     Route: 065
  3. DOLUTEGRAVIR [Concomitant]
     Active Substance: DOLUTEGRAVIR
     Indication: HIV INFECTION
     Route: 065
  4. BUDESONIDE, FORMOTEROL FUMARATE [Suspect]
     Active Substance: BUDESONIDE\FORMOTEROL FUMARATE DIHYDRATE
     Indication: PRODUCT USED FOR UNKNOWN INDICATION
     Dosage: 800 UG, QD
     Route: 055
  5. RITONAVIR. [Interacting]
     Active Substance: RITONAVIR
     Indication: HIV INFECTION
     Route: 065
  6. BUDESONIDE, FORMOTEROL FUMARATE [Interacting]
     Active Substance: BUDESONIDE\FORMOTEROL FUMARATE DIHYDRATE
     Dosage: 200 UG, QD
     Route: 055
  7. LAMIVUDINE. [Concomitant]
     Active Substance: LAMIVUDINE
     Indication: HIV INFECTION
     Route: 065
  8. SALINE [Concomitant]
     Active Substance: SODIUM CHLORIDE
     Indication: HYPOVOLAEMIA
     Dosage: 3 L, UNK
     Route: 042

REACTIONS (10)
  - Decreased appetite [Unknown]
  - Arthralgia [Unknown]
  - Pyrexia [Recovered/Resolved]
  - Asthenia [Unknown]
  - Nausea [Unknown]
  - Drug interaction [Unknown]
  - Adrenal insufficiency [Unknown]
  - Myalgia [Unknown]
  - Abdominal pain [Recovered/Resolved]
  - Fatigue [Unknown]
